FAERS Safety Report 15606991 (Version 14)
Quarter: 2022Q1

REPORT INFORMATION
  Report Type: Spontaneous
  Country: BR (occurrence: BR)
  Receive Date: 20181112
  Receipt Date: 20220325
  Transmission Date: 20220424
  Serious: Yes (Other)
  Sender: FDA-Public Use
  Company Number: BR-GLAXOSMITHKLINE-BR2017GSK022153

PATIENT
  Age: 35 Year
  Sex: Female
  Weight: 62 kg

DRUGS (13)
  1. BENLYSTA [Suspect]
     Active Substance: BELIMUMAB
     Indication: Systemic lupus erythematosus
     Dosage: 680 MG, UNK
     Route: 042
     Dates: start: 20170209
  2. BENLYSTA [Suspect]
     Active Substance: BELIMUMAB
     Dosage: 400 MG, Z EVERY 30 DAYS
     Route: 042
  3. INFLUENZA VIRUS VACCINE [Suspect]
     Active Substance: INFLUENZA VIRUS VACCINE
     Indication: Prophylaxis
  4. FOLIC ACID [Concomitant]
     Active Substance: FOLIC ACID
     Indication: Product used for unknown indication
     Dosage: UNK
  5. MAGNESIUM HYDROXIDE [Concomitant]
     Active Substance: MAGNESIUM HYDROXIDE
     Indication: Product used for unknown indication
     Dosage: UNK
  6. DIPYRONE [Concomitant]
     Active Substance: DIPYRONE
     Indication: Product used for unknown indication
     Dosage: UNK
  7. GABAPENTIN [Concomitant]
     Active Substance: GABAPENTIN
     Indication: Product used for unknown indication
     Dosage: UNK
  8. DEFLAZACORT [Concomitant]
     Active Substance: DEFLAZACORT
     Indication: Systemic lupus erythematosus
     Dosage: UNK
  9. FAMOTIDINA [Concomitant]
     Indication: Systemic lupus erythematosus
     Dosage: UNK
  10. METHOTREXATE (METHOTREXATE SODIUM) [Concomitant]
     Active Substance: METHOTREXATE SODIUM
     Indication: Systemic lupus erythematosus
     Dosage: UNK
  11. HYDROCHLOROTHIAZIDE [Concomitant]
     Active Substance: HYDROCHLOROTHIAZIDE
     Indication: Product used for unknown indication
     Dosage: UNK
  12. FISIOGEN [Concomitant]
     Indication: Product used for unknown indication
     Dosage: UNK
  13. TRAMAL (TRAMADOL HYDROCHLORIDE) [Concomitant]
     Indication: Product used for unknown indication
     Dosage: UNK

REACTIONS (18)
  - Spinal operation [Recovered/Resolved]
  - Pneumonia [Unknown]
  - Weight decreased [Unknown]
  - Weight fluctuation [Unknown]
  - Nasopharyngitis [Unknown]
  - Osteopenia [Unknown]
  - Intervertebral disc protrusion [Recovering/Resolving]
  - Influenza [Unknown]
  - Fall [Unknown]
  - Constipation [Unknown]
  - Anxiety [Not Recovered/Not Resolved]
  - Depression [Not Recovered/Not Resolved]
  - Therapy interrupted [Unknown]
  - Underdose [Unknown]
  - Overdose [Unknown]
  - Inappropriate schedule of product administration [Unknown]
  - Product dose omission issue [Unknown]
  - Circumstance or information capable of leading to medication error [Unknown]

NARRATIVE: CASE EVENT DATE: 20190401
